FAERS Safety Report 13199857 (Version 4)
Quarter: 2018Q4

REPORT INFORMATION
  Report Type: Report from Study
  Country: US (occurrence: US)
  Receive Date: 20170208
  Receipt Date: 20181018
  Transmission Date: 20190204
  Serious: Yes (Hospitalization)
  Sender: FDA-Public Use
  Company Number: US-ACTELION-A-US2016-146274

PATIENT
  Age: 67 Year
  Sex: Female
  Weight: 29.25 kg

DRUGS (2)
  1. OPSUMIT [Suspect]
     Active Substance: MACITENTAN
     Indication: PULMONARY ARTERIAL HYPERTENSION
     Dosage: 10 MG, QD
     Route: 048
     Dates: start: 20161116
  2. ADCIRCA [Concomitant]
     Active Substance: TADALAFIL

REACTIONS (8)
  - Liver disorder [Unknown]
  - Surgery [Unknown]
  - Renal disorder [Unknown]
  - Cough [Unknown]
  - Glomerular filtration rate decreased [Unknown]
  - Renal transplant [Unknown]
  - Nasopharyngitis [Unknown]
  - Liver transplant [Unknown]
